FAERS Safety Report 12375996 (Version 1)
Quarter: 2016Q2

REPORT INFORMATION
  Report Type: Spontaneous
  Country: US (occurrence: US)
  Receive Date: 20160517
  Receipt Date: 20160517
  Transmission Date: 20160815
  Serious: Yes (Other)
  Sender: FDA-Public Use
  Company Number: US-ASTELLAS-2016US002362

PATIENT
  Sex: Male

DRUGS (1)
  1. XTANDI [Suspect]
     Active Substance: ENZALUTAMIDE
     Indication: PROSTATE CANCER
     Route: 048
     Dates: start: 20151028

REACTIONS (7)
  - Decreased appetite [Unknown]
  - Hypercalcaemia [Unknown]
  - Memory impairment [Unknown]
  - Crying [Unknown]
  - Dementia [Unknown]
  - Neurosyphilis [Unknown]
  - Weight decreased [Unknown]
